FAERS Safety Report 7016528-4 (Version None)
Quarter: 2010Q3

REPORT INFORMATION
  Report Type: 
  Country: None (occurrence: None)
  Receive Date: 20100927
  Receipt Date: 20100922
  Transmission Date: 20110219
  Serious: Yes (Hospitalization)
  Sender: FDA-Public Use
  Company Number: A0836749A

PATIENT
  Age: 49 Year
  Sex: Female

DRUGS (7)
  1. AVANDIA [Suspect]
     Route: 048
     Dates: start: 20061101, end: 20070101
  2. TRICOR [Concomitant]
  3. LIPITOR [Concomitant]
  4. COMBIVENT [Concomitant]
  5. ATENOLOL [Concomitant]
  6. PROCARDIA [Concomitant]
  7. NEXIUM [Concomitant]

REACTIONS (5)
  - CORONARY ARTERY BYPASS [None]
  - MUSCULOSKELETAL PAIN [None]
  - MYOCARDIAL INFARCTION [None]
  - MYOCARDIAL ISCHAEMIA [None]
  - PAIN IN EXTREMITY [None]
